FAERS Safety Report 9853736 (Version 2)
Quarter: 2014Q1

REPORT INFORMATION
  Report Type: Spontaneous
  Country: US (occurrence: US)
  Receive Date: 20140129
  Receipt Date: 20140129
  Transmission Date: 20141002
  Serious: Yes (Hospitalization)
  Sender: FDA-Public Use
  Company Number: US-JNJFOC-20131218059

PATIENT
  Age: 69 Year
  Sex: Female
  Weight: 86.8 kg

DRUGS (12)
  1. IMBRUVICA [Suspect]
     Indication: CHRONIC LYMPHOCYTIC LEUKAEMIA
     Route: 048
     Dates: start: 20131227
  2. IMBRUVICA [Suspect]
     Indication: CHRONIC LYMPHOCYTIC LEUKAEMIA
     Route: 048
     Dates: start: 20131210, end: 20131220
  3. DILAUDID [Concomitant]
     Indication: PAIN
     Route: 048
  4. FENTANYL [Concomitant]
     Indication: PAIN
     Route: 062
  5. NORVASC [Concomitant]
     Indication: HYPERTENSION
     Route: 048
  6. LASIX [Concomitant]
     Route: 048
  7. VALTREX [Concomitant]
     Indication: PROPHYLAXIS
     Route: 048
  8. DILTIAZEM [Concomitant]
     Indication: HYPERTENSION
     Route: 048
  9. ZOFRAN [Concomitant]
     Indication: NAUSEA
     Route: 048
  10. PRILOSEC [Concomitant]
     Indication: GASTROOESOPHAGEAL REFLUX DISEASE
     Route: 048
  11. TOPROL [Concomitant]
     Indication: HYPERTENSION
     Route: 048
  12. CYMBALTA [Concomitant]
     Indication: DEPRESSION
     Route: 048

REACTIONS (3)
  - Tumour lysis syndrome [Recovering/Resolving]
  - Mental status changes [Recovered/Resolved]
  - Urinary tract infection [Recovered/Resolved]
